FAERS Safety Report 5165731-7 (Version None)
Quarter: 2006Q4

REPORT INFORMATION
  Report Type: 
  Country: None (occurrence: None)
  Receive Date: 20061128
  Receipt Date: 20061120
  Transmission Date: 20070319
  Serious: Yes (Disabling, Other)
  Sender: FDA-Public Use
  Company Number: 2006BH008119

PATIENT
  Age: 55 Year
  Sex: Male
  Weight: 165 kg

DRUGS (21)
  1. EXTRANEAL [Suspect]
     Indication: RENAL FAILURE CHRONIC
     Dosage: 2000 ML; EVERY DAY; IP
     Dates: start: 19950323, end: 20000620
  2. EXTRANEAL [Suspect]
     Indication: RENAL FAILURE CHRONIC
     Dosage: 2000 ML; EVERY DAY; IP
     Dates: start: 20000621, end: 20030817
  3. EXTRANEAL [Suspect]
     Indication: RENAL FAILURE CHRONIC
     Dosage: 2000 ML; EVERY DAY; IP
     Dates: start: 20030818, end: 20040315
  4. EXTRANEAL [Suspect]
     Indication: RENAL FAILURE CHRONIC
     Dosage: 2000 ML; EVERY DAY; IP
     Dates: start: 20030818, end: 20040315
  5. DIANEAL [Suspect]
     Indication: RENAL FAILURE CHRONIC
     Dosage: 2500 ML; EVERY DAY; IP, SEE IMAGE
     Dates: start: 19940418, end: 19940430
  6. DIANEAL [Suspect]
     Indication: RENAL FAILURE CHRONIC
     Dosage: 2500 ML; EVERY DAY; IP, SEE IMAGE
     Dates: start: 19940501, end: 19950322
  7. DIANEAL [Suspect]
     Indication: RENAL FAILURE CHRONIC
     Dosage: 2500 ML; EVERY DAY; IP, SEE IMAGE
     Dates: start: 19940501, end: 19950322
  8. TEPRENONE [Concomitant]
  9. MOSAPRIDE CITRATE [Concomitant]
  10. GUANABENZ ACETATE [Concomitant]
  11. LAFUTIDINE [Concomitant]
  12. AMLODIPINE BESYLATE [Concomitant]
  13. CANDESARTAN CILEXETIL [Concomitant]
  14. CALCITRIOL [Concomitant]
  15. PYRIDOXAL PHOSPHATE [Concomitant]
  16. TRIAZOLAM [Concomitant]
  17. PURSENNIDE [Concomitant]
  18. FLUVOXAMINE MALEATE [Concomitant]
  19. DOMPERIDONE [Concomitant]
  20. METOPROLOL TARTRATE [Concomitant]
  21. CLONAZEPAM [Concomitant]

REACTIONS (8)
  - BLOOD ALBUMIN DECREASED [None]
  - HAEMATOCRIT DECREASED [None]
  - HAEMODIALYSIS [None]
  - HAEMOGLOBIN DECREASED [None]
  - RED BLOOD CELL COUNT DECREASED [None]
  - SCLEROSING ENCAPSULATING PERITONITIS [None]
  - SURGERY [None]
  - WHITE BLOOD CELL COUNT INCREASED [None]
